FAERS Safety Report 25735576 (Version 1)
Quarter: 2025Q3

REPORT INFORMATION
  Report Type: Spontaneous
  Country: US (occurrence: None)
  Receive Date: 20250828
  Receipt Date: 20250828
  Transmission Date: 20251021
  Serious: Yes (Hospitalization)
  Sender: FDA-CTU
  Company Number: None

PATIENT
  Age: 63 Year
  Sex: Male

DRUGS (13)
  1. BIKTARVY [Suspect]
     Active Substance: BICTEGRAVIR SODIUM\EMTRICITABINE\TENOFOVIR ALAFENAMIDE FUMARATE
  2. NORTRIPTYLINE [Concomitant]
     Active Substance: NORTRIPTYLINE
  3. FARXIGA [Concomitant]
     Indication: HIV infection
     Dosage: OTHER QUANTITY : 50-200-25MG;?FREQUENCY : DAILY;?
     Route: 048
     Dates: start: 20240327
  4. FUROSEMIDE [Concomitant]
     Active Substance: FUROSEMIDE
  5. PREGABALIN [Concomitant]
     Active Substance: PREGABALIN
  6. COMBIVENT RESPIMAT [Concomitant]
     Active Substance: ALBUTEROL SULFATE\IPRATROPIUM BROMIDE
  7. DEXAMETHASONE [Concomitant]
     Active Substance: DEXAMETHASONE
  8. ACETAMINOPHEN\HYDROCODONE [Concomitant]
     Active Substance: ACETAMINOPHEN\HYDROCODONE
  9. XARELTO [Concomitant]
     Active Substance: RIVAROXABAN
  10. CARVEDILOL [Concomitant]
     Active Substance: CARVEDILOL
  11. LOSARTAN [Concomitant]
     Active Substance: LOSARTAN
  12. ATORVASTATIN [Concomitant]
     Active Substance: ATORVASTATIN
  13. TRELEGY ELLIPTA [Concomitant]
     Active Substance: FLUTICASONE FUROATE\UMECLIDINIUM BROMIDE\VILANTEROL TRIFENATATE

REACTIONS (4)
  - Pneumonia [None]
  - Cerebral disorder [None]
  - Oropharyngeal discomfort [None]
  - Loss of personal independence in daily activities [None]

NARRATIVE: CASE EVENT DATE: 20250828
